FAERS Safety Report 12328850 (Version 1)
Quarter: 2016Q2

REPORT INFORMATION
  Report Type: Spontaneous
  Country: US (occurrence: US)
  Receive Date: 20160503
  Receipt Date: 20160503
  Transmission Date: 20160815
  Serious: No
  Sender: FDA-Public Use
  Company Number: US-BEH-2015051282

PATIENT
  Sex: Male
  Weight: 60 kg

DRUGS (20)
  1. DIPHENHYDRAMINE. [Concomitant]
     Active Substance: DIPHENHYDRAMINE
     Route: 048
  2. VALCYTE [Concomitant]
     Active Substance: VALGANCICLOVIR HYDROCHLORIDE
     Route: 048
  3. PREDNISONE. [Concomitant]
     Active Substance: PREDNISONE
     Route: 048
  4. LMX [Concomitant]
     Active Substance: LIDOCAINE
     Dosage: PRIOR TO INFUSION
     Route: 061
  5. RAPAMUNE [Concomitant]
     Active Substance: SIROLIMUS
     Route: 048
  6. LOSARTAN. [Concomitant]
     Active Substance: LOSARTAN
     Route: 048
  7. LEXAPRO [Concomitant]
     Active Substance: ESCITALOPRAM OXALATE
     Route: 048
  8. LORATADINE. [Concomitant]
     Active Substance: LORATADINE
     Route: 048
  9. ASPIRIN. [Concomitant]
     Active Substance: ASPIRIN
     Route: 048
  10. COZAAR [Concomitant]
     Active Substance: LOSARTAN POTASSIUM
     Route: 048
  11. LIDOCAINE/PRILOCAINE [Concomitant]
     Indication: ANAPHYLACTIC REACTION
     Route: 061
  12. RANITIDINE. [Concomitant]
     Active Substance: RANITIDINE
     Route: 048
  13. ACETAMINOPHEN. [Concomitant]
     Active Substance: ACETAMINOPHEN
     Route: 048
  14. FOLIC ACID. [Concomitant]
     Active Substance: FOLIC ACID
     Route: 048
  15. PRAVASTATIN [Concomitant]
     Active Substance: PRAVASTATIN\PRAVASTATIN SODIUM
     Route: 048
  16. AUGMENTIN [Concomitant]
     Active Substance: AMOXICILLIN\CLAVULANATE POTASSIUM
     Route: 048
  17. EPIPEN [Concomitant]
     Active Substance: EPINEPHRINE
     Indication: ANAPHYLACTIC REACTION
     Route: 030
  18. HIZENTRA [Suspect]
     Active Substance: HUMAN IMMUNOGLOBULIN G
     Indication: IMMUNODEFICIENCY COMMON VARIABLE
     Route: 058
  19. TACROLIMUS. [Concomitant]
     Active Substance: TACROLIMUS
     Route: 048
  20. POLYSACCHARIDE [Concomitant]
     Route: 048

REACTIONS (1)
  - Administration site swelling [Unknown]
